FAERS Safety Report 4555715-1 (Version None)
Quarter: 2005Q1

REPORT INFORMATION
  Report Type: 
  Country: None (occurrence: None)
  Receive Date: 20050112
  Receipt Date: 20040607
  Transmission Date: 20050727
  Serious: Yes (Other)
  Sender: FDA-Public Use
  Company Number: 200418287BWH

PATIENT
  Age: 42 Year
  Sex: Female
  Weight: 54.9306 kg

DRUGS (4)
  1. CIPRO [Suspect]
     Indication: CYSTITIS
     Dosage: 500 MG, BID, ORAL
     Route: 048
     Dates: start: 20040519, end: 20040521
  2. CIPRO [Suspect]
     Indication: PELVIC PAIN
     Dosage: 500 MG, BID, ORAL
     Route: 048
     Dates: start: 20040519, end: 20040521
  3. CIPRO [Suspect]
     Indication: URINARY TRACT INFECTION
     Dosage: 500 MG, BID, ORAL
     Route: 048
     Dates: start: 20040519, end: 20040521
  4. MULTI-VITAMIN [Concomitant]

REACTIONS (8)
  - DIZZINESS [None]
  - DRUG HYPERSENSITIVITY [None]
  - DYSPNOEA [None]
  - INSOMNIA [None]
  - PRURITUS [None]
  - PYREXIA [None]
  - RASH [None]
  - URTICARIA [None]
